FAERS Safety Report 20010020 (Version 1)
Quarter: 2021Q4

REPORT INFORMATION
  Report Type: Spontaneous
  Country: US (occurrence: US)
  Receive Date: 20211029
  Receipt Date: 20211029
  Transmission Date: 20220303
  Serious: Yes (Other)
  Sender: FDA-Public Use
  Company Number: US-STRIDES ARCOLAB LIMITED-2021SP026113

PATIENT
  Age: 21 Year
  Sex: Female

DRUGS (46)
  1. GABAPENTIN [Suspect]
     Active Substance: GABAPENTIN
     Indication: Guillain-Barre syndrome
     Dosage: UNK
     Route: 065
  2. GABAPENTIN [Suspect]
     Active Substance: GABAPENTIN
     Indication: Symptomatic treatment
  3. GABAPENTIN [Suspect]
     Active Substance: GABAPENTIN
     Indication: Myalgia
  4. ERYTHROMYCIN [Suspect]
     Active Substance: ERYTHROMYCIN
     Indication: Guillain-Barre syndrome
     Dosage: UNK
     Route: 065
  5. ERYTHROMYCIN [Suspect]
     Active Substance: ERYTHROMYCIN
     Indication: Symptomatic treatment
  6. ERYTHROMYCIN [Suspect]
     Active Substance: ERYTHROMYCIN
     Indication: Autonomic failure syndrome
  7. PROMETHAZINE HYDROCHLORIDE [Suspect]
     Active Substance: PROMETHAZINE HYDROCHLORIDE
     Indication: Guillain-Barre syndrome
     Dosage: UNK
     Route: 065
  8. PROMETHAZINE HYDROCHLORIDE [Suspect]
     Active Substance: PROMETHAZINE HYDROCHLORIDE
     Indication: Symptomatic treatment
  9. PROMETHAZINE HYDROCHLORIDE [Suspect]
     Active Substance: PROMETHAZINE HYDROCHLORIDE
     Indication: Autonomic failure syndrome
  10. DICYCLOMINE [Suspect]
     Active Substance: DICYCLOMINE HYDROCHLORIDE
     Indication: Guillain-Barre syndrome
     Dosage: UNK
     Route: 065
  11. DICYCLOMINE [Suspect]
     Active Substance: DICYCLOMINE HYDROCHLORIDE
     Indication: Symptomatic treatment
  12. DICYCLOMINE [Suspect]
     Active Substance: DICYCLOMINE HYDROCHLORIDE
     Indication: Autonomic failure syndrome
  13. DIPHENHYDRAMINE [Suspect]
     Active Substance: DIPHENHYDRAMINE
     Indication: Guillain-Barre syndrome
     Dosage: UNK
     Route: 065
  14. DIPHENHYDRAMINE [Suspect]
     Active Substance: DIPHENHYDRAMINE
     Indication: Symptomatic treatment
  15. DIPHENHYDRAMINE [Suspect]
     Active Substance: DIPHENHYDRAMINE
     Indication: Autonomic failure syndrome
  16. FAMOTIDINE [Suspect]
     Active Substance: FAMOTIDINE
     Indication: Guillain-Barre syndrome
     Dosage: UNK
     Route: 065
  17. FAMOTIDINE [Suspect]
     Active Substance: FAMOTIDINE
     Indication: Symptomatic treatment
  18. FAMOTIDINE [Suspect]
     Active Substance: FAMOTIDINE
     Indication: Autonomic failure syndrome
  19. METOCLOPRAMIDE [Suspect]
     Active Substance: METOCLOPRAMIDE
     Indication: Guillain-Barre syndrome
     Dosage: UNK
     Route: 065
  20. METOCLOPRAMIDE [Suspect]
     Active Substance: METOCLOPRAMIDE
     Indication: Symptomatic treatment
  21. METOCLOPRAMIDE [Suspect]
     Active Substance: METOCLOPRAMIDE
     Indication: Autonomic failure syndrome
  22. ONDANSETRON [Suspect]
     Active Substance: ONDANSETRON
     Indication: Guillain-Barre syndrome
     Dosage: UNK
     Route: 065
  23. ONDANSETRON [Suspect]
     Active Substance: ONDANSETRON
     Indication: Symptomatic treatment
  24. ONDANSETRON [Suspect]
     Active Substance: ONDANSETRON
     Indication: Autonomic failure syndrome
  25. PANTOPRAZOLE [Suspect]
     Active Substance: PANTOPRAZOLE
     Indication: Guillain-Barre syndrome
     Dosage: UNK
     Route: 065
  26. PANTOPRAZOLE [Suspect]
     Active Substance: PANTOPRAZOLE
     Indication: Symptomatic treatment
  27. PANTOPRAZOLE [Suspect]
     Active Substance: PANTOPRAZOLE
     Indication: Autonomic failure syndrome
  28. PREGABALIN [Suspect]
     Active Substance: PREGABALIN
     Indication: Guillain-Barre syndrome
     Dosage: UNK
     Route: 065
  29. PREGABALIN [Suspect]
     Active Substance: PREGABALIN
     Indication: Symptomatic treatment
  30. PREGABALIN [Suspect]
     Active Substance: PREGABALIN
     Indication: Myalgia
  31. SCOPOLAMINE [Suspect]
     Active Substance: SCOPOLAMINE
     Indication: Guillain-Barre syndrome
     Dosage: UNK
     Route: 065
  32. SCOPOLAMINE [Suspect]
     Active Substance: SCOPOLAMINE
     Indication: Symptomatic treatment
  33. SCOPOLAMINE [Suspect]
     Active Substance: SCOPOLAMINE
     Indication: Autonomic failure syndrome
  34. TRAMADOL [Suspect]
     Active Substance: TRAMADOL
     Indication: Guillain-Barre syndrome
     Dosage: UNK
     Route: 065
  35. TRAMADOL [Suspect]
     Active Substance: TRAMADOL
     Indication: Symptomatic treatment
  36. TRAMADOL [Suspect]
     Active Substance: TRAMADOL
     Indication: Myalgia
  37. ACETAMINOPHEN [Suspect]
     Active Substance: ACETAMINOPHEN
     Indication: Guillain-Barre syndrome
     Dosage: UNK
     Route: 065
  38. ACETAMINOPHEN [Suspect]
     Active Substance: ACETAMINOPHEN
     Indication: Symptomatic treatment
  39. ACETAMINOPHEN [Suspect]
     Active Substance: ACETAMINOPHEN
     Indication: Myalgia
  40. MORPHINE [Concomitant]
     Active Substance: MORPHINE
     Indication: Guillain-Barre syndrome
     Dosage: UNK
     Route: 065
  41. MORPHINE [Concomitant]
     Active Substance: MORPHINE
     Indication: Symptomatic treatment
  42. MORPHINE [Concomitant]
     Active Substance: MORPHINE
     Indication: Myalgia
  43. MIDODRINE [Concomitant]
     Active Substance: MIDODRINE
     Indication: Orthostatic hypotension
     Dosage: UNK
     Route: 065
  44. MIDODRINE [Concomitant]
     Active Substance: MIDODRINE
     Indication: Tachycardia
  45. FLUDROCORTISONE [Concomitant]
     Active Substance: FLUDROCORTISONE
     Indication: Orthostatic hypotension
     Dosage: UNK
     Route: 065
  46. FLUDROCORTISONE [Concomitant]
     Active Substance: FLUDROCORTISONE
     Indication: Tachycardia

REACTIONS (2)
  - Treatment failure [Unknown]
  - Off label use [Unknown]
